FAERS Safety Report 6826792-X (Version None)
Quarter: 2010Q3

REPORT INFORMATION
  Report Type: 
  Country: None (occurrence: None)
  Receive Date: 20100709
  Receipt Date: 20100629
  Transmission Date: 20110219
  Serious: Yes (Hospitalization)
  Sender: FDA-Public Use
  Company Number: US-ROCHE-674267

PATIENT
  Sex: Female
  Weight: 152 kg

DRUGS (12)
  1. TOCILIZUMAB [Suspect]
     Indication: RHEUMATOID ARTHRITIS
     Dosage: FORM INFUSION.
     Route: 042
  2. LANTUS [Concomitant]
     Dosage: TOTAL DAILY DOSE 50 UNITS.
     Dates: start: 20050101
  3. NOVOLOG [Concomitant]
     Dosage: TDD : 45 UNITS.
     Dates: start: 20050101
  4. DARVOCET [Concomitant]
     Dosage: TDD : 100/600 MG.
     Dates: start: 20090101
  5. EXFORGE [Concomitant]
     Dosage: TDD : 10/320 MG
     Dates: start: 20080101
  6. AMITRIPTYLINE HYDROCHLORIDE [Concomitant]
     Dates: start: 20010101
  7. CALCIUM CARBONATE [Concomitant]
     Dates: start: 20090101
  8. ASPIRINE [Concomitant]
     Dates: start: 20080101
  9. FOLIC ACID [Concomitant]
     Dates: start: 20080226
  10. MAXZIDE [Concomitant]
     Dosage: TDD: 75/50 MG
     Dates: start: 19880101
  11. PRILOSEC [Concomitant]
     Dates: start: 20080101
  12. METHOTREXATE [Concomitant]
     Dosage: ON TUESDAYS.

REACTIONS (2)
  - HYPERCOAGULATION [None]
  - THROMBOPHLEBITIS SUPERFICIAL [None]
